FAERS Safety Report 7297634-6 (Version None)
Quarter: 2011Q1

REPORT INFORMATION
  Report Type: 
  Country: None (occurrence: None)
  Receive Date: 20110216
  Receipt Date: 20110215
  Transmission Date: 20110831
  Serious: Yes (Hospitalization, Other)
  Sender: FDA-Public Use
  Company Number: US-AMGEN-USASP2011007557

PATIENT
  Age: 76 Year
  Sex: Male
  Weight: 126.53 kg

DRUGS (15)
  1. MAGNESIUM [Concomitant]
     Dosage: 420 MG, QD
  2. NPLATE [Suspect]
     Indication: IDIOPATHIC THROMBOCYTOPENIC PURPURA
     Route: 058
     Dates: start: 20110125, end: 20110201
  3. PRILOSEC [Concomitant]
     Dosage: 20 MG, QD
  4. PREDNISONE [Concomitant]
     Dosage: 15 MG, QD
  5. LISINOPRIL [Concomitant]
     Dosage: 20 MG, QD
  6. CORTICOSTEROIDS [Concomitant]
  7. ZOCOR [Concomitant]
     Dosage: 80 MG, QD
  8. POTASSIUM CHLORIDE [Concomitant]
     Dosage: 20 MEQ, BID
  9. BENADRYL [Concomitant]
  10. FLUNISOLIDE [Concomitant]
     Dosage: UNK
  11. METOPROLOL [Concomitant]
     Dosage: UNK UNK, BID
  12. LASIX [Concomitant]
     Dosage: 40 MG, BID
  13. IPRATROPIUM BROMIDE [Concomitant]
     Dosage: 17 MG, QD
  14. FENOTEROL [Concomitant]
     Dosage: 12 MG, QD
  15. XANAX [Concomitant]
     Dosage: 0.5 MG, BID

REACTIONS (12)
  - NAUSEA [None]
  - MYOGLOBIN BLOOD INCREASED [None]
  - ARTHRALGIA [None]
  - BONE PAIN [None]
  - GAIT DISTURBANCE [None]
  - ASTHENIA [None]
  - BLOOD LACTATE DEHYDROGENASE INCREASED [None]
  - RENAL FAILURE [None]
  - FIBRIN D DIMER INCREASED [None]
  - LACERATION [None]
  - FALL [None]
  - MYALGIA [None]
